FAERS Safety Report 7054577-0 (Version None)
Quarter: 2010Q4

REPORT INFORMATION
  Report Type: 
  Country: None (occurrence: None)
  Receive Date: 20101015
  Receipt Date: 20101008
  Transmission Date: 20110411
  Serious: Yes (Death)
  Sender: FDA-Public Use
  Company Number: CIP10002430

PATIENT
  Age: 75 Year
  Sex: Female

DRUGS (2)
  1. ACTONEL [Suspect]
     Dosage: UNKNOWN, ORAL
     Route: 048
  2. BONIVA [Suspect]

REACTIONS (6)
  - ABDOMINAL DISCOMFORT [None]
  - HYPOPHAGIA [None]
  - INFLUENZA LIKE ILLNESS [None]
  - MALAISE [None]
  - PAIN [None]
  - RENAL FAILURE ACUTE [None]
